FAERS Safety Report 7126451-2 (Version None)
Quarter: 2010Q4

REPORT INFORMATION
  Report Type: 
  Country: None (occurrence: None)
  Receive Date: 20101129
  Receipt Date: 20101103
  Transmission Date: 20110411
  Serious: Yes (Other)
  Sender: FDA-Public Use
  Company Number: US-AMGEN-USASP2010003585

PATIENT

DRUGS (1)
  1. PROCRIT [Suspect]
     Indication: PREOPERATIVE CARE
     Dosage: UNK
     Dates: start: 20060101

REACTIONS (3)
  - BLOOD COUNT ABNORMAL [None]
  - RETINOPATHY [None]
  - SICKLE CELL ANAEMIA [None]
